FAERS Safety Report 4853720-9 (Version None)
Quarter: 2005Q4

REPORT INFORMATION
  Report Type: 
  Country: None (occurrence: None)
  Receive Date: 20051212
  Receipt Date: 20051129
  Transmission Date: 20060501
  Serious: Yes (Life-Threatening)
  Sender: FDA-Public Use
  Company Number: 05H-163-0303936-00

PATIENT
  Age: 11 Year
  Sex: Male

DRUGS (3)
  1. MEPERIDINE HCL [Suspect]
     Indication: PAIN
     Dosage: 5 MG/HR, CONTINUOUS
  2. TPN (TPN) [Concomitant]
  3. MORPHINE [Concomitant]

REACTIONS (2)
  - CONVULSION [None]
  - UNEVALUABLE EVENT [None]
